FAERS Safety Report 4805856-6 (Version None)
Quarter: 2005Q4

REPORT INFORMATION
  Report Type: 
  Country: None (occurrence: None)
  Receive Date: 20051018
  Receipt Date: 20050429
  Transmission Date: 20060501
  Serious: Yes (Other)
  Sender: FDA-Public Use
  Company Number: CC05-013

PATIENT
  Sex: Female
  Weight: 65.318 kg

DRUGS (1)
  1. ALBUTEROL [Suspect]
     Indication: ASTHMA EXERCISE INDUCED
     Dosage: PRN, INHALATION
     Route: 055

REACTIONS (1)
  - DRUG INEFFECTIVE [None]
